FAERS Safety Report 5954245-X (Version None)
Quarter: 2008Q4

REPORT INFORMATION
  Report Type: 
  Country: None (occurrence: None)
  Receive Date: 20081117
  Receipt Date: 20081110
  Transmission Date: 20090506
  Serious: Yes (Other)
  Sender: FDA-Public Use
  Company Number: US-JNJFOC-20080806281

PATIENT
  Sex: Female

DRUGS (3)
  1. REMICADE [Suspect]
     Dosage: INC. TO 6 VIALS Q 6 WEEKS
     Route: 042
  2. REMICADE [Suspect]
     Dosage: INC. TO 6 VIALS Q 6 WEEKS
     Route: 042
  3. REMICADE [Suspect]
     Indication: RHEUMATOID ARTHRITIS
     Dosage: 4 VIALS Q 6 WEEKS
     Route: 042

REACTIONS (6)
  - DYSPHONIA [None]
  - LYMPHADENOPATHY [None]
  - SALIVARY GLAND ENLARGEMENT [None]
  - THYROID CYST [None]
  - THYROID DISORDER [None]
  - VOCAL CORD PARALYSIS [None]
